FAERS Safety Report 22062929 (Version 2)
Quarter: 2024Q4

REPORT INFORMATION
  Report Type: Report from Study
  Country: CA (occurrence: CA)
  Receive Date: 20230306
  Receipt Date: 20241115
  Transmission Date: 20250115
  Serious: No
  Sender: CELLTRION
  Company Number: CA-CELLTRION INC.-2022CA022299

PATIENT

DRUGS (4)
  1. RITUXIMAB-ABBS [Suspect]
     Active Substance: RITUXIMAB-ABBS
     Indication: Neuromyelitis optica spectrum disorder
     Dosage: 1000MG IV ON DAY 1
     Route: 042
     Dates: start: 202306
  2. RITUXIMAB-ABBS [Suspect]
     Active Substance: RITUXIMAB-ABBS
     Dosage: 1000MG IV ON DAY 15
     Route: 042
  3. RITUXIMAB-ABBS [Suspect]
     Active Substance: RITUXIMAB-ABBS
     Dosage: 1000MG Q 6 MONTHS FOR 24 MONTHS (DURATION 24 M)
     Route: 042
  4. RITUXIMAB-ABBS [Suspect]
     Active Substance: RITUXIMAB-ABBS
     Dosage: 500MG Q 6 MONTHS FOR 24 MONTHS
     Route: 042

REACTIONS (1)
  - Off label use [Unknown]
